FAERS Safety Report 4630094-X (Version None)
Quarter: 2005Q2

REPORT INFORMATION
  Report Type: 
  Country: None (occurrence: None)
  Receive Date: 20050408
  Receipt Date: 20050310
  Transmission Date: 20051028
  Serious: Yes (Hospitalization, Disabling, Other)
  Sender: FDA-Public Use
  Company Number: US-MERCK-0503USA01597

PATIENT
  Age: 55 Year
  Sex: Male

DRUGS (10)
  1. VIOXX [Suspect]
     Indication: PAIN
     Route: 048
     Dates: start: 19990101, end: 20030101
  2. VIOXX [Suspect]
     Route: 048
     Dates: start: 20011204
  3. VIOXX [Suspect]
     Route: 048
     Dates: start: 20021102
  4. VIOXX [Suspect]
     Route: 048
     Dates: end: 20030601
  5. VIOXX [Suspect]
     Indication: OSTEOARTHRITIS
     Route: 048
     Dates: start: 19990101, end: 20030101
  6. VIOXX [Suspect]
     Route: 048
     Dates: start: 20011204
  7. VIOXX [Suspect]
     Route: 048
     Dates: start: 20021102
  8. VIOXX [Suspect]
     Route: 048
     Dates: end: 20030601
  9. INSULIN [Concomitant]
     Route: 065
  10. LISINOPRIL [Concomitant]
     Route: 065

REACTIONS (11)
  - BLOOD PRESSURE INCREASED [None]
  - CARDIAC DISORDER [None]
  - CEREBROVASCULAR ACCIDENT [None]
  - CHEST WALL PAIN [None]
  - DIABETIC NEUROPATHY [None]
  - INTERVERTEBRAL DISC DISORDER [None]
  - INTERVERTEBRAL DISC DISPLACEMENT [None]
  - MYOCARDIAL ISCHAEMIA [None]
  - PERONEAL NERVE PALSY [None]
  - RADICULOPATHY [None]
  - RETINOPATHY [None]
